FAERS Safety Report 16678562 (Version 2)
Quarter: 2019Q3

REPORT INFORMATION
  Report Type: Spontaneous
  Country: US (occurrence: US)
  Receive Date: 20190807
  Receipt Date: 20190822
  Transmission Date: 20191004
  Serious: Yes (Other)
  Sender: FDA-Public Use
  Company Number: US-ABBVIE-19K-163-2879766-00

PATIENT
  Age: 46 Year
  Sex: Male

DRUGS (1)
  1. DUOPA [Suspect]
     Active Substance: CARBIDOPA\LEVODOPA
     Indication: PARKINSON^S DISEASE
     Route: 050

REACTIONS (6)
  - Device physical property issue [Unknown]
  - Medical procedure [Unknown]
  - Pharyngeal disorder [Unknown]
  - Device deployment issue [Unknown]
  - Wrong device used [Unknown]
  - Stoma complication [Unknown]

NARRATIVE: CASE EVENT DATE: 20181112
